FAERS Safety Report 20857563 (Version 10)
Quarter: 2024Q2

REPORT INFORMATION
  Report Type: Report from Study
  Country: CZ (occurrence: CZ)
  Receive Date: 20220520
  Receipt Date: 20240614
  Transmission Date: 20240716
  Serious: Yes (Hospitalization, Other)
  Sender: FDA-Public Use
  Company Number: CZ-BAXTER-2022BAX010543

PATIENT
  Age: 67 Year
  Sex: Female
  Weight: 56 kg

DRUGS (44)
  1. DOXORUBICIN [Suspect]
     Active Substance: DOXORUBICIN
     Indication: Diffuse large B-cell lymphoma stage III
     Dosage: 50 MG/M2, EVERY 3 WEEKS, R-CHOP, DOSAGE FORM: SOLUTION FOR INFUSION
     Route: 042
     Dates: start: 20220419, end: 20220419
  2. CYCLOPHOSPHAMIDE [Suspect]
     Active Substance: CYCLOPHOSPHAMIDE
     Indication: Diffuse large B-cell lymphoma stage III
     Dosage: 750 MG/M2, EVERY 3 WEEKS, R-CHOP, CUMULATIVE DOSE: 750 MG/M2, DOSAGE FORM: POWDER FOR SOLUTION FOR I
     Route: 042
     Dates: start: 20220419, end: 20220419
  3. RITUXIMAB [Suspect]
     Active Substance: RITUXIMAB
     Indication: Diffuse large B-cell lymphoma stage III
     Dosage: 375 MG/M2, EVERY 3 WEEKS, R-CHOP ONGOING
     Route: 042
     Dates: start: 20220419
  4. VINCRISTINE SULFATE [Suspect]
     Active Substance: VINCRISTINE SULFATE
     Indication: Diffuse large B-cell lymphoma stage III
     Dosage: 1.4 MG/M2, EVERY 3 WEEKS, R-CHOP, CUMULATIVE DOSE: 1.45 MG/M2
     Route: 042
     Dates: start: 20220419, end: 20220419
  5. SOLU-MEDROL [Suspect]
     Active Substance: METHYLPREDNISOLONE SODIUM SUCCINATE
     Indication: Diffuse large B-cell lymphoma stage III
     Dosage: 80 MILLIGRAM, QD
     Route: 042
     Dates: start: 20220419, end: 20220419
  6. SOLU-MEDROL [Suspect]
     Active Substance: METHYLPREDNISOLONE SODIUM SUCCINATE
     Indication: Prophylaxis
     Dosage: 80 MILLIGRAM, QD
     Route: 042
     Dates: start: 20220413, end: 20220418
  7. SOLU-MEDROL [Suspect]
     Active Substance: METHYLPREDNISOLONE SODIUM SUCCINATE
     Dosage: 80 DOSAGE FORM, 80 MG
     Route: 042
     Dates: start: 20220413, end: 20220419
  8. PREDNISONE [Suspect]
     Active Substance: PREDNISONE
     Indication: Diffuse large B-cell lymphoma stage III
     Dosage: 100 MG, QD
     Route: 048
     Dates: start: 20220420, end: 20220423
  9. PREDNISONE [Suspect]
     Active Substance: PREDNISONE
     Dosage: AT 10:30 HRS, 100 MG, 1X/DAY
     Route: 048
     Dates: start: 20220503, end: 20220506
  10. PREDNISONE [Suspect]
     Active Substance: PREDNISONE
     Dosage: 100 MG, 1X/DAY, CUMULATIVE DOSE: 200 MG
     Route: 048
     Dates: start: 20220426, end: 20220429
  11. EPCORITAMAB [Suspect]
     Active Substance: EPCORITAMAB
     Indication: Diffuse large B-cell lymphoma stage III
     Dosage: 0.16 MG, (TOTAL), PRIMING DOSE: 0.16 MG, SINGLE
     Route: 058
     Dates: start: 20220419, end: 20220419
  12. EPCORITAMAB [Suspect]
     Active Substance: EPCORITAMAB
     Dosage: 0.8 MG (TOTAL), INTERMEDIATE DOSE: 0.8 MG, SINGLE
     Route: 058
     Dates: start: 20220426, end: 20220426
  13. EPCORITAMAB [Suspect]
     Active Substance: EPCORITAMAB
     Dosage: FULL DOSE: 48 MG, WEEKLY
     Route: 058
     Dates: start: 20220503
  14. METHYLPREDNISOLONE SODIUM SUCCINATE [Suspect]
     Active Substance: METHYLPREDNISOLONE SODIUM SUCCINATE
     Indication: Diffuse large B-cell lymphoma stage III
     Dosage: 80 MG, QD
     Route: 042
     Dates: start: 20220419, end: 20220419
  15. ONDANSETRON [Concomitant]
     Active Substance: ONDANSETRON
     Indication: Premedication
     Dosage: 8 MG
     Route: 042
     Dates: start: 20220419, end: 20220419
  16. BISULEPIN [Concomitant]
     Active Substance: BISULEPIN
     Indication: Premedication
     Dosage: 1 MG
     Route: 042
     Dates: start: 20220419, end: 20220503
  17. BISULEPIN [Concomitant]
     Active Substance: BISULEPIN
     Dosage: 2 MG
     Route: 048
     Dates: start: 20220503, end: 20220503
  18. BISULEPIN [Concomitant]
     Active Substance: BISULEPIN
     Dosage: 1 MG
     Route: 042
     Dates: start: 20220419, end: 20220419
  19. BISULEPIN [Concomitant]
     Active Substance: BISULEPIN
     Dosage: 2 MG
     Route: 048
     Dates: start: 20220426, end: 20220503
  20. BISULEPIN [Concomitant]
     Active Substance: BISULEPIN
     Dosage: 2 MG
     Route: 048
     Dates: start: 20220426, end: 20220426
  21. Paralen [Concomitant]
     Indication: Premedication
     Dosage: 1000 MG
     Route: 048
     Dates: start: 20220419, end: 20220503
  22. Paralen [Concomitant]
     Dosage: 1000 MG
     Route: 048
     Dates: start: 20220503, end: 20220503
  23. Paralen [Concomitant]
     Dosage: 1000 MG
     Route: 048
     Dates: start: 20220419, end: 20220419
  24. Paralen [Concomitant]
     Dosage: 1000 MG
     Route: 048
     Dates: start: 20220426, end: 20220503
  25. PREDNISONE [Concomitant]
     Active Substance: PREDNISONE
     Indication: Prophylaxis
     Dosage: 100 MG
     Route: 048
     Dates: start: 20220426, end: 20220429
  26. PREDNISONE [Concomitant]
     Active Substance: PREDNISONE
     Dosage: 100 MG, START TIME: AT 10:30 HRS
     Route: 048
     Dates: start: 20220503, end: 20220506
  27. PREDNISONE [Concomitant]
     Active Substance: PREDNISONE
     Dosage: 100 MG
     Route: 048
     Dates: start: 20220420, end: 20220423
  28. PREDNISONE [Concomitant]
     Active Substance: PREDNISONE
     Dosage: 1000 DOSAGE FORM, 1000 MG
     Route: 048
     Dates: start: 20220420, end: 20220506
  29. FILGRASTIM [Concomitant]
     Active Substance: FILGRASTIM
     Dosage: UNK
     Route: 065
     Dates: start: 20220423, end: 20220427
  30. AMLODIPINE BESYLATE\LISINOPRIL [Concomitant]
     Active Substance: AMLODIPINE BESYLATE\LISINOPRIL
     Dosage: UNK, (START DATE: 2016)
     Route: 065
     Dates: end: 20230223
  31. EUTHYROX [Concomitant]
     Active Substance: LEVOTHYROXINE SODIUM
     Dosage: UNK, (START DATE: 2014), ONGOING
     Route: 065
  32. NADROPARIN CALCIUM [Concomitant]
     Active Substance: NADROPARIN CALCIUM
     Dosage: UNK
     Route: 065
     Dates: start: 20220414, end: 20220531
  33. GRANISETRON HYDROCHLORIDE [Concomitant]
     Active Substance: GRANISETRON HYDROCHLORIDE
     Dosage: UNK, STOP DATE: JAN-2023
     Route: 065
     Dates: start: 20220422
  34. POTASSIUM CHLORIDE [Concomitant]
     Active Substance: POTASSIUM CHLORIDE
     Dosage: UNK
     Route: 065
     Dates: start: 20220427, end: 20220429
  35. ALLOPURINOL [Concomitant]
     Active Substance: ALLOPURINOL
     Dosage: UNK
     Route: 065
     Dates: start: 20220419, end: 20220517
  36. FLUCONAZOLE [Concomitant]
     Active Substance: FLUCONAZOLE
     Dosage: UNK, STOP DATE:  MAY-2022
     Route: 065
     Dates: start: 20220426
  37. OMEPRAZOLE [Concomitant]
     Active Substance: DONEPEZIL HYDROCHLORIDE\OMEPRAZOLE\OMEPRAZOLE MAGNESIUM
     Dosage: UNK, ONGOING
     Route: 065
     Dates: start: 20220426
  38. OXAZEPAM [Concomitant]
     Active Substance: OXAZEPAM
     Dosage: UNK
     Route: 065
     Dates: start: 20220426, end: 20220621
  39. PERINDOPRIL ARGININE [Concomitant]
     Active Substance: PERINDOPRIL ARGININE
     Dosage: UNK
     Route: 065
     Dates: start: 20220419, end: 20220516
  40. SOLU-MEDROL [Concomitant]
     Active Substance: METHYLPREDNISOLONE SODIUM SUCCINATE
     Indication: Prophylaxis
     Dosage: 80 MG
     Route: 042
     Dates: start: 20220413, end: 20220418
  41. BISOPROLOL FUMARATE [Concomitant]
     Active Substance: BISOPROLOL FUMARATE
     Dosage: UNK (START DATE: 2004),ONGOING
     Route: 065
  42. TRAMADOL [Concomitant]
     Active Substance: TRAMADOL\TRAMADOL HYDROCHLORIDE
     Dosage: UNK, ONGOING
     Route: 065
     Dates: start: 20220405
  43. VALACYCLOVIR HYDROCHLORIDE [Concomitant]
     Active Substance: VALACYCLOVIR HYDROCHLORIDE
     Dosage: UNK, ONGOING
     Route: 065
     Dates: start: 20220419
  44. ZALDIAR [Concomitant]
     Active Substance: ACETAMINOPHEN\TRAMADOL HYDROCHLORIDE
     Dosage: UNK, STOP DATE: JAN-2023
     Route: 065
     Dates: start: 20220405

REACTIONS (2)
  - Cytokine release syndrome [Recovered/Resolved]
  - Pyrexia [Recovered/Resolved]

NARRATIVE: CASE EVENT DATE: 20220504
